FAERS Safety Report 24177813 (Version 3)
Quarter: 2024Q4

REPORT INFORMATION
  Report Type: Spontaneous
  Country: CA (occurrence: CA)
  Receive Date: 20240806
  Receipt Date: 20241003
  Transmission Date: 20250114
  Serious: Yes (Other)
  Sender: CELLTRION
  Company Number: CA-PFIZER INC-202400216251

PATIENT

DRUGS (4)
  1. INFLECTRA [Suspect]
     Active Substance: INFLIXIMAB-DYYB
     Indication: Colitis ulcerative
     Dosage: 5 MG/KG, W 0, 2, 6, THEN EVERY 8 WEEKS
     Route: 042
     Dates: start: 20240521
  2. INFLECTRA [Suspect]
     Active Substance: INFLIXIMAB-DYYB
     Dosage: 5 MG/KG, W 0, 2, 6, THEN EVERY 8 WEEKS
     Route: 042
     Dates: start: 20240702
  3. INFLECTRA [Suspect]
     Active Substance: INFLIXIMAB-DYYB
     Dosage: 580 MG (10 MG/KG), EVERY 6 WEEKS
     Route: 042
     Dates: start: 20240813
  4. INFLECTRA [Suspect]
     Active Substance: INFLIXIMAB-DYYB
     Dosage: 590 MG (10 MG/KG), EVERY 6 WEEKS
     Route: 042
     Dates: start: 20240924

REACTIONS (4)
  - Gamma-glutamyltransferase increased [Unknown]
  - Condition aggravated [Recovered/Resolved]
  - Blood alkaline phosphatase increased [Unknown]
  - Off label use [Unknown]

NARRATIVE: CASE EVENT DATE: 20240702
